FAERS Safety Report 23870536 (Version 1)
Quarter: 2024Q2

REPORT INFORMATION
  Report Type: Spontaneous
  Country: US (occurrence: US)
  Receive Date: 20240518
  Receipt Date: 20240518
  Transmission Date: 20240717
  Serious: No
  Sender: FDA-Public Use
  Company Number: US-ABBVIE-5764367

PATIENT
  Sex: Male

DRUGS (1)
  1. CREON [Suspect]
     Active Substance: PANCRELIPASE AMYLASE\PANCRELIPASE LIPASE\PANCRELIPASE PROTEASE
     Indication: Irritable bowel syndrome
     Dosage: FORM STRENGTH: 24000 UNIT
     Route: 048

REACTIONS (2)
  - Dementia [Not Recovered/Not Resolved]
  - Product physical issue [Not Recovered/Not Resolved]
